FAERS Safety Report 7276814-X (Version None)
Quarter: 2011Q1

REPORT INFORMATION
  Report Type: 
  Country: None (occurrence: None)
  Receive Date: 20110207
  Receipt Date: 20110127
  Transmission Date: 20110831
  Serious: Yes (Hospitalization)
  Sender: FDA-Public Use
  Company Number: US-BIOGENIDEC-2010BI040833

PATIENT
  Sex: Female

DRUGS (2)
  1. RITUXAN [Concomitant]
     Indication: NEUROMYELITIS OPTICA
  2. TYSABRI [Suspect]
     Indication: MULTIPLE SCLEROSIS
     Route: 042
     Dates: start: 20100827

REACTIONS (1)
  - NO ADVERSE EVENT [None]
